FAERS Safety Report 10704412 (Version 1)
Quarter: 2015Q1

REPORT INFORMATION
  Report Type: Spontaneous
  Country: US (occurrence: US)
  Receive Date: 20150112
  Receipt Date: 20150112
  Transmission Date: 20150721
  Serious: Yes (Other)
  Sender: FDA-Public Use
  Company Number: US-B.I. PHARMACEUTICALS,INC./RIDGEFIELD-2015-BI-01048BP

PATIENT
  Age: 69 Year
  Sex: Male
  Weight: 84.37 kg

DRUGS (2)
  1. SPIRIVA [Suspect]
     Active Substance: TIOTROPIUM BROMIDE MONOHYDRATE
     Dosage: 36 MCG
     Route: 055
     Dates: start: 201409
  2. SPIRIVA [Suspect]
     Active Substance: TIOTROPIUM BROMIDE MONOHYDRATE
     Indication: CHRONIC OBSTRUCTIVE PULMONARY DISEASE
     Dosage: 18 MCG
     Route: 055
     Dates: start: 201201, end: 201409

REACTIONS (6)
  - Brain neoplasm [Not Recovered/Not Resolved]
  - Haematemesis [Recovered/Resolved]
  - Vomiting [Recovered/Resolved]
  - Lung neoplasm malignant [Not Recovered/Not Resolved]
  - Haemoptysis [Recovered/Resolved]
  - Overdose [Unknown]

NARRATIVE: CASE EVENT DATE: 201202
